FAERS Safety Report 9283997 (Version 1)
Quarter: 2013Q2

REPORT INFORMATION
  Report Type: Spontaneous
  Country: GB (occurrence: GB)
  Receive Date: 20130510
  Receipt Date: 20130510
  Transmission Date: 20140414
  Serious: Yes (Hospitalization)
  Sender: FDA-Public Use
  Company Number: PHHY2013GB046100

PATIENT
  Age: 73 Year
  Sex: Female

DRUGS (1)
  1. ETODOLAC [Suspect]
     Indication: ARTHRITIS
     Dosage: 600 MG, BID

REACTIONS (8)
  - Encephalopathy [Unknown]
  - Acute hepatic failure [Recovered/Resolved]
  - Malaise [Recovered/Resolved]
  - Jaundice [Recovered/Resolved]
  - Abdominal pain [Recovered/Resolved]
  - Hepatitis [Recovered/Resolved]
  - Hepatic necrosis [Recovered/Resolved]
  - Drug-induced liver injury [Recovered/Resolved]
